FAERS Safety Report 14806696 (Version 1)
Quarter: 2018Q2

REPORT INFORMATION
  Report Type: Report from Study
  Country: IT (occurrence: IT)
  Receive Date: 20180425
  Receipt Date: 20180425
  Transmission Date: 20180711
  Serious: Yes (Other)
  Sender: FDA-Public Use
  Company Number: IT-PFIZER INC-2018166366

PATIENT
  Age: 49 Year
  Sex: Female
  Weight: 60 kg

DRUGS (2)
  1. IBRANCE [Suspect]
     Active Substance: PALBOCICLIB
     Indication: BREAST CANCER
     Dosage: 125 MG, 1X/DAY
     Route: 048
     Dates: start: 20180210, end: 20180319
  2. LETROZOLE. [Concomitant]
     Active Substance: LETROZOLE
     Indication: BREAST CANCER
     Dosage: 2.5 MG, UNK
     Route: 048

REACTIONS (5)
  - Transaminases increased [Unknown]
  - Dyspnoea [Unknown]
  - Asthenia [Unknown]
  - Electrocardiogram QT prolonged [Unknown]
  - Chest pain [Unknown]

NARRATIVE: CASE EVENT DATE: 20180319
